FAERS Safety Report 19178539 (Version 1)
Quarter: 2021Q2

REPORT INFORMATION
  Report Type: Spontaneous
  Country: FR (occurrence: FR)
  Receive Date: 20210426
  Receipt Date: 20210426
  Transmission Date: 20210717
  Serious: Yes (Hospitalization, Other)
  Sender: FDA-Public Use
  Company Number: FR-AUROBINDO-AUR-APL-2021-017017

PATIENT
  Age: 19 Year
  Sex: Female
  Weight: 100 kg

DRUGS (1)
  1. PARACETAMOL [Suspect]
     Active Substance: ACETAMINOPHEN
     Indication: PRODUCT USED FOR UNKNOWN INDICATION
     Dosage: 64 GRAM, 1 TOTAL
     Route: 048
     Dates: start: 20210316, end: 20210316

REACTIONS (3)
  - Poisoning deliberate [Recovered/Resolved]
  - Hepatic cytolysis [Recovering/Resolving]
  - Drug level increased [Recovered/Resolved]

NARRATIVE: CASE EVENT DATE: 20210316
